FAERS Safety Report 23173003 (Version 1)
Quarter: 2023Q4

REPORT INFORMATION
  Report Type: Spontaneous
  Country: None (occurrence: US)
  Receive Date: 20231110
  Receipt Date: 20231110
  Transmission Date: 20240110
  Serious: Yes (Death)
  Sender: FDA-Public Use
  Company Number: US-Jiangsu Hengrui Medicine Co., Ltd.-2148091

PATIENT
  Age: 90 Year

DRUGS (4)
  1. OXALIPLATIN [Suspect]
     Active Substance: OXALIPLATIN
     Indication: Adenocarcinoma gastric
     Route: 042
  2. CAPECITABINE [Suspect]
     Active Substance: CAPECITABINE
     Route: 048
  3. PEMBROLIZUMAB [Suspect]
     Active Substance: PEMBROLIZUMAB
     Route: 042
  4. EPIRUBICIN [Suspect]
     Active Substance: EPIRUBICIN
     Route: 042

REACTIONS (2)
  - Gastric haemorrhage [Fatal]
  - Product use in unapproved indication [Fatal]
